FAERS Safety Report 20177237 (Version 1)
Quarter: 2021Q4

REPORT INFORMATION
  Report Type: Spontaneous
  Country: US (occurrence: US)
  Receive Date: 20211213
  Receipt Date: 20211213
  Transmission Date: 20220303
  Serious: Yes (Death)
  Sender: FDA-Public Use
  Company Number: US-NOVARTISPH-NVSC2021US284114

PATIENT
  Sex: Female

DRUGS (1)
  1. PROMACTA [Suspect]
     Active Substance: ELTROMBOPAG OLAMINE
     Indication: Product used for unknown indication
     Dosage: 400 MG, BID (TWICE A DAY)
     Route: 048

REACTIONS (3)
  - Death [Fatal]
  - Incorrect dose administered [Unknown]
  - Inappropriate schedule of product administration [Unknown]
